FAERS Safety Report 19626575 (Version 1)
Quarter: 2021Q3

REPORT INFORMATION
  Report Type: Other
  Country: US (occurrence: US)
  Receive Date: 20210728
  Receipt Date: 20210728
  Transmission Date: 20211014
  Serious: Yes (Hospitalization, Disabling, Other)
  Sender: FDA-Public Use
  Company Number: US-ROCHE-2792157

PATIENT
  Age: 57 Year
  Sex: Female

DRUGS (7)
  1. OCREVUS [Suspect]
     Active Substance: OCRELIZUMAB
     Indication: PROGRESSIVE MULTIPLE SCLEROSIS
     Route: 042
  2. ALEVE [Concomitant]
     Active Substance: NAPROXEN SODIUM
     Indication: HEADACHE
     Dosage: TAKES AS NEEDED?ONGOING YES
  3. TYLENOL [Concomitant]
     Active Substance: ACETAMINOPHEN
     Indication: HEADACHE
     Dosage: TAKES AS NEEDED
  4. OCREVUS [Suspect]
     Active Substance: OCRELIZUMAB
     Indication: RELAPSING MULTIPLE SCLEROSIS
     Dosage: 300 MG ON DAY 1 AND 15, THEN 600 MG ONCE IN 6 MONTHS?DATE OF TREATMENT: 22/OCT/2019, 24/MAR/2020 AND
     Route: 042
     Dates: start: 20191003
  5. DEXAMFETAMINE [Concomitant]
     Active Substance: DEXTROAMPHETAMINE
     Dosage: ONGOING UNKNOWN
     Route: 048
  6. CYCLOBENZAPRINE. [Concomitant]
     Active Substance: CYCLOBENZAPRINE
     Dosage: ONGOING YES
     Route: 048
  7. ASPIRIN. [Concomitant]
     Active Substance: ASPIRIN
     Indication: HEADACHE
     Dosage: TAKES AS NEEDED

REACTIONS (5)
  - Fibula fracture [Unknown]
  - Gait inability [Unknown]
  - Influenza [Not Recovered/Not Resolved]
  - Tibia fracture [Unknown]
  - Fall [Unknown]

NARRATIVE: CASE EVENT DATE: 202003
